FAERS Safety Report 18334200 (Version 1)
Quarter: 2020Q4

REPORT INFORMATION
  Report Type: Spontaneous
  Country: DE (occurrence: DE)
  Receive Date: 20201001
  Receipt Date: 20201001
  Transmission Date: 20210113
  Serious: Yes (Life-Threatening, Hospitalization, Other)
  Sender: FDA-Public Use
  Company Number: DE-ACCORD-203178

PATIENT
  Age: 31 Year
  Sex: Female

DRUGS (2)
  1. QUETIAPINE. [Suspect]
     Active Substance: QUETIAPINE
     Dosage: IMMEDIATE RELEASE QUETIAPINE
     Route: 048
  2. QUETIAPINE. [Suspect]
     Active Substance: QUETIAPINE
     Dosage: XR QUETIAPINE
     Route: 048

REACTIONS (5)
  - Somnolence [Recovered/Resolved]
  - Bezoar [Recovered/Resolved]
  - Intentional overdose [Unknown]
  - Suicide attempt [Recovered/Resolved]
  - Toxicity to various agents [Unknown]
